FAERS Safety Report 7719652-3 (Version None)
Quarter: 2011Q3

REPORT INFORMATION
  Report Type: 
  Country: None (occurrence: None)
  Receive Date: 20110830
  Receipt Date: 20110824
  Transmission Date: 20111222
  Serious: Yes (Death, Hospitalization)
  Sender: FDA-Public Use
  Company Number: ML-B.I. PHARMACEUTICALS,INC./RIDGEFIELD-2011-DE-04756GD

PATIENT

DRUGS (1)
  1. LAMIVUDINE STAVUDINE NEVIRAPINE [Suspect]

REACTIONS (2)
  - ANGIOEDEMA [None]
  - HEPATITIS [None]
